FAERS Safety Report 9833900 (Version 1)
Quarter: 2014Q1

REPORT INFORMATION
  Report Type: Spontaneous
  Country: US (occurrence: US)
  Receive Date: 20140122
  Receipt Date: 20140122
  Transmission Date: 20141002
  Serious: No
  Sender: FDA-Public Use
  Company Number: US-BIOGENIDEC-2014BI005537

PATIENT
  Sex: Female
  Weight: 52 kg

DRUGS (8)
  1. TECFIDERA [Suspect]
     Indication: MULTIPLE SCLEROSIS
     Route: 048
     Dates: start: 201312, end: 201312
  2. AMINOPHENAZONE [Concomitant]
  3. METOPROLOL [Concomitant]
  4. DETROL [Concomitant]
  5. ZETIA [Concomitant]
  6. PAROXETINE [Concomitant]
  7. CITRACAL [Concomitant]
  8. PROBIOTIC [Concomitant]

REACTIONS (3)
  - Skin reaction [Unknown]
  - Pruritus [Unknown]
  - Rash [Unknown]
